FAERS Safety Report 5132084-X (Version None)
Quarter: 2006Q4

REPORT INFORMATION
  Report Type: 
  Country: None (occurrence: None)
  Receive Date: 20061017
  Receipt Date: 20061004
  Transmission Date: 20070319
  Serious: No
  Sender: FDA-Public Use
  Company Number: GXBR2006US00926

PATIENT
  Sex: Female
  Weight: 3.1 kg

DRUGS (2)
  1. RIBAVIRIN [Suspect]
     Dosage: FETAL DRUG EXPOSURE VIA FATHER
  2. PEGINTERFERON ALFA2-A(PEGINTERFERON ALFA-2A) [Suspect]
     Dosage: FETAL DRUG EXPOSURE VIA FATHER

REACTIONS (7)
  - DACRYOSTENOSIS CONGENITAL [None]
  - EYE DISCHARGE [None]
  - JAUNDICE NEONATAL [None]
  - NEONATAL DISORDER [None]
  - NORMAL NEWBORN [None]
  - ORAL CANDIDIASIS [None]
  - TRANSMISSION OF DRUG VIA SEMEN [None]
